FAERS Safety Report 8384076-5 (Version None)
Quarter: 2012Q1

REPORT INFORMATION
  Report Type: 
  Country: None (occurrence: None)
  Receive Date: 20120323
  Receipt Date: 20110303
  Transmission Date: 20120608
  Serious: Yes (Other)
  Sender: FDA-Public Use
  Company Number: 163-21880-11030826

PATIENT
  Age: 73 Year
  Sex: Female

DRUGS (4)
  1. REVLIMID [Suspect]
     Dosage: 25 MG, 1 IN 1 D, PO,10 MG, 1 IN 1 D, PO, 15 MG, 1 IN 1 D, PO, 10 MG, 1 IN 1 D, PO
     Route: 048
     Dates: start: 20081101
  2. REVLIMID [Suspect]
     Dosage: 25 MG, 1 IN 1 D, PO,10 MG, 1 IN 1 D, PO, 15 MG, 1 IN 1 D, PO, 10 MG, 1 IN 1 D, PO
     Route: 048
     Dates: start: 20090201
  3. REVLIMID [Suspect]
     Dosage: 25 MG, 1 IN 1 D, PO,10 MG, 1 IN 1 D, PO, 15 MG, 1 IN 1 D, PO, 10 MG, 1 IN 1 D, PO
     Route: 048
     Dates: start: 20091001
  4. REVLIMID [Suspect]
     Dosage: 25 MG, 1 IN 1 D, PO,10 MG, 1 IN 1 D, PO, 15 MG, 1 IN 1 D, PO, 10 MG, 1 IN 1 D, PO
     Route: 048
     Dates: start: 20090601

REACTIONS (2)
  - MUSCLE SPASMS [None]
  - NEUROPATHY PERIPHERAL [None]
